FAERS Safety Report 7999596-2 (Version None)
Quarter: 2011Q4

REPORT INFORMATION
  Report Type: 
  Country: None (occurrence: None)
  Receive Date: 20111221
  Receipt Date: 20111213
  Transmission Date: 20120403
  Serious: Yes (Hospitalization, Disabling, Other)
  Sender: FDA-Public Use
  Company Number: US-MERCK-1105USA03427

PATIENT
  Age: 51 Year
  Sex: Female
  Weight: 72 kg

DRUGS (10)
  1. PREVACID [Concomitant]
     Route: 065
     Dates: start: 19950101
  2. BONIVA [Suspect]
     Indication: OSTEOPOROSIS
     Route: 065
     Dates: start: 20080301, end: 20090601
  3. SINGULAIR [Concomitant]
     Route: 048
     Dates: start: 20000101
  4. FOSAMAX [Suspect]
     Indication: OSTEOPOROSIS
     Route: 048
     Dates: start: 19990101, end: 20070801
  5. FOSAMAX PLUS D [Suspect]
     Indication: OSTEOPOROSIS
     Route: 048
     Dates: start: 20071001, end: 20080201
  6. ADVAIR DISKUS 100/50 [Concomitant]
     Route: 065
     Dates: start: 19950101
  7. PROVENTIL [Concomitant]
     Route: 065
     Dates: start: 20030101
  8. FOSAMAX [Suspect]
     Indication: OSTEOPENIA
     Route: 048
     Dates: start: 19990101, end: 20070801
  9. BONIVA [Suspect]
     Indication: OSTEOPENIA
     Route: 065
     Dates: start: 20080301, end: 20090601
  10. ALBUTEROL [Concomitant]
     Route: 065
     Dates: start: 19900101

REACTIONS (57)
  - HYPERTENSION [None]
  - VERTIGO [None]
  - URINARY INCONTINENCE [None]
  - FEMUR FRACTURE [None]
  - FRACTURE NONUNION [None]
  - SPINAL COMPRESSION FRACTURE [None]
  - ARTHROPATHY [None]
  - BREAST CYST [None]
  - COUGH [None]
  - DRY EYE [None]
  - TRIGGER FINGER [None]
  - PAIN [None]
  - HYPOAESTHESIA [None]
  - SINUS DISORDER [None]
  - PNEUMONITIS [None]
  - ATELECTASIS [None]
  - FRACTURE [None]
  - THORACIC VERTEBRAL FRACTURE [None]
  - PRESYNCOPE [None]
  - TREATMENT NONCOMPLIANCE [None]
  - PULMONARY HYPERTENSION [None]
  - HYPOTENSION [None]
  - CYST [None]
  - BREAST DISORDER [None]
  - GALLBLADDER DISORDER [None]
  - STRESS [None]
  - MUSCULAR WEAKNESS [None]
  - ANXIETY [None]
  - ASTHMA [None]
  - OSTEOARTHRITIS [None]
  - TONSILLAR DISORDER [None]
  - PANIC ATTACK [None]
  - ROAD TRAFFIC ACCIDENT [None]
  - BIPOLAR DISORDER [None]
  - UTERINE DISORDER [None]
  - APHASIA [None]
  - KYPHOSIS [None]
  - IMPAIRED HEALING [None]
  - HYPERCHOLESTEROLAEMIA [None]
  - GASTROOESOPHAGEAL REFLUX DISEASE [None]
  - ELECTROCARDIOGRAM ABNORMAL [None]
  - LOW TURNOVER OSTEOPATHY [None]
  - PALPITATIONS [None]
  - AMNESIA [None]
  - TREMOR [None]
  - HEADACHE [None]
  - CHEST PAIN [None]
  - STRESS FRACTURE [None]
  - BONE PAIN [None]
  - MUSCULOSKELETAL DISORDER [None]
  - INSOMNIA [None]
  - BIPOLAR I DISORDER [None]
  - GAIT DISTURBANCE [None]
  - SEDATION [None]
  - INFECTIOUS MONONUCLEOSIS [None]
  - HEAD INJURY [None]
  - BLEPHARITIS [None]
